FAERS Safety Report 13256704 (Version 1)
Quarter: 2017Q1

REPORT INFORMATION
  Report Type: Spontaneous
  Country: US (occurrence: US)
  Receive Date: 20170220
  Receipt Date: 20170220
  Transmission Date: 20170428
  Serious: Yes (Disabling)
  Sender: FDA-Public Use
  Company Number: None

PATIENT
  Age: 45 Year
  Sex: Female
  Weight: 94.5 kg

DRUGS (13)
  1. VICTOZA [Concomitant]
     Active Substance: LIRAGLUTIDE
  2. METFORMIN [Concomitant]
     Active Substance: METFORMIN HYDROCHLORIDE
  3. LEVOTHYROXINE. [Concomitant]
     Active Substance: LEVOTHYROXINE
  4. OTEZLA [Concomitant]
     Active Substance: APREMILAST
  5. PROBIOTICS [Concomitant]
     Active Substance: PROBIOTICS NOS
  6. METOPROLOL. [Concomitant]
     Active Substance: METOPROLOL
  7. FERROUS SULFATE. [Concomitant]
     Active Substance: FERROUS SULFATE
  8. ALEVE [Concomitant]
     Active Substance: NAPROXEN SODIUM
  9. VITAMIN B12 [Concomitant]
     Active Substance: CYANOCOBALAMIN
  10. PROBIOTICS [Concomitant]
     Active Substance: PROBIOTICS NOS
  11. PRENATAL VITAMIN [Concomitant]
     Active Substance: VITAMINS
  12. HUMIRA [Suspect]
     Active Substance: ADALIMUMAB
     Indication: PSORIATIC ARTHROPATHY
     Dosage: ?          OTHER FREQUENCY:EVERY OTHER WEEK;?
     Route: 030
     Dates: start: 20160908, end: 20170127
  13. VITAMIN D3 [Concomitant]
     Active Substance: CHOLECALCIFEROL

REACTIONS (1)
  - Iron deficiency anaemia [None]

NARRATIVE: CASE EVENT DATE: 20170206
